FAERS Safety Report 8179307-0 (Version None)
Quarter: 2012Q1

REPORT INFORMATION
  Report Type: 
  Country: None (occurrence: None)
  Receive Date: 20120302
  Receipt Date: 20120223
  Transmission Date: 20120608
  Serious: Yes (Hospitalization)
  Sender: FDA-Public Use
  Company Number: JP-NOVOPROD-344189

PATIENT
  Age: 75 Year
  Sex: Male
  Weight: 47 kg

DRUGS (16)
  1. ACYCRIL                            /00587301/ [Concomitant]
     Indication: HERPES ZOSTER
     Dosage: 750 MG, QD
     Route: 042
     Dates: start: 20110514, end: 20110520
  2. HUMALOG [Suspect]
     Dosage: 18 U, QD
     Route: 058
     Dates: start: 20110107, end: 20110520
  3. URSO                               /00465701/ [Concomitant]
  4. LANTUS [Suspect]
     Indication: PRODUCT USED FOR UNKNOWN INDICATION
     Dosage: 8 U, QD
     Route: 058
     Dates: start: 20110315
  5. ALBUMIN TANNATE [Concomitant]
  6. LYRICA [Concomitant]
     Indication: HERPES ZOSTER
     Dosage: 300 MG, QD
     Route: 048
     Dates: start: 20110521, end: 20110901
  7. NOVORAPID CHU FLEXPEN [Suspect]
     Indication: PANCREATOGENOUS DIABETES
     Dosage: 8-8-5 UT
     Route: 058
     Dates: start: 20110907, end: 20111129
  8. NOVORAPID CHU FLEXPEN [Suspect]
     Dosage: UNK
     Route: 058
  9. HUMULIN R [Concomitant]
     Dosage: 42 U, QD
     Route: 042
     Dates: start: 20110113, end: 20110117
  10. LOPERAMIDE HCL [Concomitant]
  11. NOVOLIN N [Suspect]
     Dosage: 4 U, QD
     Route: 058
     Dates: start: 20120207
  12. HUMULIN R [Concomitant]
     Dosage: 36 U, QD
     Route: 042
     Dates: start: 20111129, end: 20120202
  13. NOVORAPID CHU FLEXPEN [Suspect]
     Dosage: UNK
     Route: 058
     Dates: start: 20111220
  14. NOVOLIN N [Suspect]
     Indication: PANCREATOGENOUS DIABETES
     Dosage: 2 U, QD
     Route: 058
     Dates: start: 20110521, end: 20110906
  15. LANTUS [Suspect]
     Dosage: 10 U, QD
     Route: 058
     Dates: start: 20110117, end: 20110521
  16. TRYPTANOL                          /00002202/ [Concomitant]
     Indication: HERPES ZOSTER
     Dosage: 10 MG, QD
     Route: 048
     Dates: start: 20110802, end: 20110901

REACTIONS (2)
  - ANTI-INSULIN ANTIBODY POSITIVE [None]
  - HYPOGLYCAEMIA [None]
